FAERS Safety Report 7828959-0 (Version None)
Quarter: 2011Q4

REPORT INFORMATION
  Report Type: 
  Country: None (occurrence: None)
  Receive Date: 20111020
  Receipt Date: 20110408
  Transmission Date: 20120403
  Serious: Yes (Other)
  Sender: FDA-Public Use
  Company Number: JP-BAYER-2011-031260

PATIENT
  Age: 62 Year
  Sex: Male

DRUGS (3)
  1. NEXAVAR [Suspect]
     Dosage: 200 MG, UNK
     Route: 048
  2. NEXAVAR [Suspect]
     Dosage: 400 MG, UNK
     Route: 048
  3. NEXAVAR [Suspect]
     Indication: HEPATIC NEOPLASM MALIGNANT
     Dosage: 200 MG, UNK
     Route: 048

REACTIONS (2)
  - LIVER DISORDER [None]
  - MELAENA [None]
